FAERS Safety Report 8540773 (Version 2)
Quarter: 2013Q1

REPORT INFORMATION
  Report Type: Spontaneous
  Country: US (occurrence: US)
  Receive Date: 20120502
  Receipt Date: 20130103
  Transmission Date: 20140127
  Serious: Yes (Hospitalization, Other)
  Sender: FDA-Public Use
  Company Number: US-BAYER-2012-041038

PATIENT
  Age: 35 Year
  Sex: Female
  Weight: 81.63 kg

DRUGS (10)
  1. YAZ [Suspect]
     Indication: CONTRACEPTION
     Dosage: UNK
     Dates: start: 200803, end: 200903
  2. YAZ [Suspect]
     Indication: PREMENSTRUAL SYNDROME
  3. OCELLA [Suspect]
     Dosage: UNK
     Dates: start: 200908, end: 200912
  4. MOTRIN [Concomitant]
     Dosage: 10 MG, UNK
     Dates: start: 20091111
  5. IMITREX [Concomitant]
     Dosage: UNK
     Dates: start: 20091111
  6. PRILOSEC [Concomitant]
     Dosage: UNK
     Dates: start: 200911
  7. PROTONIX [Concomitant]
  8. DICYCLOMINE [Concomitant]
     Dosage: 10 MG, UNK
     Dates: start: 20091112
  9. PANTOPRAZOLE [Concomitant]
     Dosage: 40 MG, UNK
     Dates: start: 20091115
  10. HYDROCODONE W/ACETAMINOPHEN [Concomitant]
     Dosage: 5-500
     Dates: start: 20091021

REACTIONS (8)
  - Gallbladder injury [None]
  - Injury [None]
  - Pain [None]
  - General physical health deterioration [None]
  - Emotional distress [None]
  - Gastrointestinal disorder [None]
  - Depression [None]
  - Biliary dyskinesia [None]
